FAERS Safety Report 4382341-X (Version None)
Quarter: 2004Q2

REPORT INFORMATION
  Report Type: 
  Country: None (occurrence: None)
  Receive Date: 20040622
  Receipt Date: 20040607
  Transmission Date: 20050107
  Serious: Yes (Other)
  Sender: FDA-Public Use
  Company Number: PHEH2004US06218

PATIENT
  Age: 23 Year
  Sex: Male

DRUGS (3)
  1. LOPRESSOR [Suspect]
     Indication: HYPERTENSION
     Dosage: 25 MG, BID
     Dates: start: 20040605
  2. DECADRON [Concomitant]
     Dosage: 1 MG, Q6H
  3. PEPCID [Concomitant]
     Dosage: 20 MG, BID

REACTIONS (2)
  - HAEMATOCRIT DECREASED [None]
  - HAEMOGLOBIN DECREASED [None]
